FAERS Safety Report 7559097-2 (Version None)
Quarter: 2011Q2

REPORT INFORMATION
  Report Type: 
  Country: None (occurrence: None)
  Receive Date: 20110525
  Receipt Date: 20110315
  Transmission Date: 20111010
  Serious: No
  Sender: FDA-Public Use
  Company Number: 325342

PATIENT
  Age: 82 Year
  Sex: Female

DRUGS (6)
  1. VICTOZA [Suspect]
     Indication: TYPE 2 DIABETES MELLITUS
     Dosage: 1.2 MG, QD, SUBCUTANEOUS
     Route: 058
     Dates: start: 20101007
  2. LASIX [Concomitant]
  3. TRAMADOL HCL [Concomitant]
  4. HUMULIN /00646001/ (INSULIN HUMAN) [Suspect]
     Indication: TYPE 2 DIABETES MELLITUS
     Dosage: SUBCUTANEOUS
     Route: 058
  5. VITAMIN B6 [Concomitant]
  6. AVAPRO [Concomitant]

REACTIONS (1)
  - DYSPHONIA [None]
